FAERS Safety Report 4839539-3 (Version None)
Quarter: 2005Q4

REPORT INFORMATION
  Report Type: 
  Country: None (occurrence: None)
  Receive Date: 20051031
  Receipt Date: 20050915
  Transmission Date: 20060501
  Serious: No
  Sender: FDA-Public Use
  Company Number: 200516735US

PATIENT

DRUGS (2)
  1. KETEK [Suspect]
     Indication: RESPIRATORY TRACT INFECTION
  2. WARFARIN SODIUM [Suspect]

REACTIONS (1)
  - INTERNATIONAL NORMALISED RATIO DECREASED [None]
